FAERS Safety Report 11828323 (Version 1)
Quarter: 2015Q4

REPORT INFORMATION
  Report Type: Spontaneous
  Country: DE (occurrence: DE)
  Receive Date: 20151211
  Receipt Date: 20151211
  Transmission Date: 20160305
  Serious: Yes (Hospitalization)
  Sender: FDA-Public Use
  Company Number: DE-UCBSA-2015039647

PATIENT
  Age: 58 Year
  Sex: Male

DRUGS (4)
  1. ZONEGRAN [Suspect]
     Active Substance: ZONISAMIDE
     Indication: PRODUCT USED FOR UNKNOWN INDICATION
     Dosage: TOTAL AMOUNT - 300 MG
     Route: 048
     Dates: start: 20151205, end: 20151205
  2. SEROQUEL [Suspect]
     Active Substance: QUETIAPINE FUMARATE
     Indication: PRODUCT USED FOR UNKNOWN INDICATION
     Dosage: TOTAL AMOUNT - 200 MG
     Route: 048
     Dates: start: 20151205, end: 20151205
  3. VIMPAT [Suspect]
     Active Substance: LACOSAMIDE
     Indication: PRODUCT USED FOR UNKNOWN INDICATION
     Dosage: TOTAL AMOUNT - 200 MG
     Route: 048
     Dates: start: 201512, end: 201512
  4. RISPERIDON [Suspect]
     Active Substance: RISPERIDONE
     Indication: PRODUCT USED FOR UNKNOWN INDICATION
     Dosage: TOTAL AMOUNT - 2 MG
     Route: 048
     Dates: start: 20151205, end: 20151205

REACTIONS (3)
  - Tachycardia [Unknown]
  - Somnolence [Unknown]
  - Accidental exposure to product [Unknown]

NARRATIVE: CASE EVENT DATE: 20151205
